FAERS Safety Report 8227432-8 (Version None)
Quarter: 2012Q1

REPORT INFORMATION
  Report Type: 
  Country: None (occurrence: None)
  Receive Date: 20120322
  Receipt Date: 20120316
  Transmission Date: 20120608
  Serious: Yes (Other)
  Sender: FDA-Public Use
  Company Number: US-BAYER-2012-026615

PATIENT
  Age: 60 Year
  Sex: Female
  Weight: 77 kg

DRUGS (7)
  1. ASPIRIN [Concomitant]
  2. ATENOLOL [Concomitant]
  3. ZANTAC [Concomitant]
  4. VITAMIN D [Concomitant]
  5. PHILLIPS' COLON HEALTH [Concomitant]
  6. NAPROXEN (ALEVE) [Suspect]
     Indication: ARTHRITIS
     Dosage: 1 DF, ONCE
     Route: 048
     Dates: start: 20120316, end: 20120316
  7. VITAMINS, OTHER COMBINATIONS [Concomitant]

REACTIONS (13)
  - ANGIOPATHY [None]
  - TINNITUS [None]
  - CEREBROVASCULAR ACCIDENT [None]
  - PRURITUS GENERALISED [None]
  - VOMITING [None]
  - HEART RATE INCREASED [None]
  - OEDEMA PERIPHERAL [None]
  - BLOOD PRESSURE INCREASED [None]
  - BLOOD PRESSURE ABNORMAL [None]
  - HEADACHE [None]
  - HYPERSENSITIVITY [None]
  - PRURITUS [None]
  - HEART RATE IRREGULAR [None]
